FAERS Safety Report 19068613 (Version 1)
Quarter: 2021Q1

REPORT INFORMATION
  Report Type: Spontaneous
  Country: US (occurrence: US)
  Receive Date: 20210328
  Receipt Date: 20210328
  Transmission Date: 20210420
  Serious: Yes (Hospitalization)
  Sender: FDA-Public Use
  Company Number: None

PATIENT
  Sex: Female
  Weight: 78.3 kg

DRUGS (12)
  1. OXYCODONE [Concomitant]
     Active Substance: OXYCODONE
  2. KEYTRUDA [Suspect]
     Active Substance: PEMBROLIZUMAB
     Indication: RENAL CANCER
     Dates: start: 20210113
  3. DRAMAMINE [Concomitant]
     Active Substance: DIMENHYDRINATE
  4. MEGESTROL [Concomitant]
     Active Substance: MEGESTROL
  5. METFORMIN [Concomitant]
     Active Substance: METFORMIN HYDROCHLORIDE
  6. NORCO [Concomitant]
     Active Substance: ACETAMINOPHEN\HYDROCODONE BITARTRATE
  7. PREDNISONE. [Concomitant]
     Active Substance: PREDNISONE
  8. TEMSIROLIMUS. [Concomitant]
     Active Substance: TEMSIROLIMUS
  9. DEXAMETHASONE. [Concomitant]
     Active Substance: DEXAMETHASONE
  10. AVASTIN [Suspect]
     Active Substance: BEVACIZUMAB
     Indication: RENAL CANCER
     Dates: start: 20210113
  11. CLONAZEPAM. [Concomitant]
     Active Substance: CLONAZEPAM
  12. XGEVA [Concomitant]
     Active Substance: DENOSUMAB

REACTIONS (1)
  - Hospitalisation [None]
